FAERS Safety Report 14678044 (Version 3)
Quarter: 2018Q3

REPORT INFORMATION
  Report Type: Report from Study
  Country: US (occurrence: US)
  Receive Date: 20180326
  Receipt Date: 20180912
  Transmission Date: 20181010
  Serious: Yes (Hospitalization)
  Sender: FDA-Public Use
  Company Number: US-ALEXION PHARMACEUTICALS INC.-A201803043

PATIENT
  Age: 1 Year
  Sex: Female
  Weight: 8 kg

DRUGS (15)
  1. ACETAMINOPHEN. [Concomitant]
     Active Substance: ACETAMINOPHEN
     Indication: MYALGIA
     Dosage: 45 MG, QID
     Route: 042
     Dates: start: 20160115, end: 20170117
  2. TRIAMCINOLONE [Concomitant]
     Active Substance: TRIAMCINOLONE
     Indication: PROPHYLAXIS
     Dosage: 1 APPLICATION, PRN
     Route: 061
     Dates: start: 20160224
  3. ANCEF [Concomitant]
     Active Substance: CEFAZOLIN SODIUM
     Indication: PRODUCT USED FOR UNKNOWN INDICATION
     Dosage: UNK
     Route: 065
     Dates: end: 20180115
  4. PYRIDOXINE [Concomitant]
     Active Substance: PYRIDOXINE
     Indication: PROPHYLAXIS
     Dosage: 50 MG, QD
     Route: 048
     Dates: start: 20160105
  5. ERYTHROMYCIN ETHYLSUCCINATE. [Concomitant]
     Active Substance: ERYTHROMYCIN ETHYLSUCCINATE
     Indication: PREMEDICATION
     Dosage: 12 MG, QID
     Route: 050
     Dates: start: 20161201
  6. ZANTAC [Concomitant]
     Active Substance: RANITIDINE HYDROCHLORIDE
     Indication: GASTROOESOPHAGEAL REFLUX DISEASE
     Dosage: 21 MG, TID
     Route: 050
     Dates: start: 20161201
  7. PREVACID [Concomitant]
     Active Substance: LANSOPRAZOLE
     Indication: GASTROOESOPHAGEAL REFLUX DISEASE
     Dosage: 7.5 MG, QD
     Route: 048
     Dates: start: 2016
  8. STRENSIQ [Suspect]
     Active Substance: ASFOTASE ALFA
     Dosage: 27 MG, TIW
     Route: 065
     Dates: start: 20180110
  9. POLYVISOL                          /02170301/ [Concomitant]
     Dosage: 0.2 ML, BID (NG TUBE)
     Route: 050
     Dates: start: 20151223
  10. OCEAN NASAL [Concomitant]
     Indication: NASAL CONGESTION
     Dosage: 1 SPRAY, PRN
     Route: 045
     Dates: start: 20161202
  11. STRENSIQ [Suspect]
     Active Substance: ASFOTASE ALFA
     Indication: HYPOPHOSPHATASIA
     Dosage: 2 MG/KG, TIW (40 MG/ML)
     Route: 058
     Dates: start: 20151125
  12. AQUAPHOR                           /01181901/ [Concomitant]
     Indication: DERMATITIS
     Dosage: 1 APPLICATION, TID
     Route: 061
     Dates: start: 20151231
  13. OCEAN NASAL [Concomitant]
     Indication: PNEUMONIA
  14. BACITRACIN. [Concomitant]
     Active Substance: BACITRACIN
     Indication: SWELLING
     Dosage: UNK, BID
     Route: 065
  15. POLYVISOL                          /02170301/ [Concomitant]
     Indication: VITAMIN D DECREASED
     Dosage: 0.2 ML, BID (G TUBE)
     Route: 050
     Dates: start: 20151223

REACTIONS (1)
  - Craniosynostosis [Recovered/Resolved]

NARRATIVE: CASE EVENT DATE: 20170202
